FAERS Safety Report 5153798-1 (Version None)
Quarter: 2006Q4

REPORT INFORMATION
  Report Type: 
  Country: None (occurrence: None)
  Receive Date: 20061120
  Receipt Date: 20061018
  Transmission Date: 20070319
  Serious: Yes (Death, Life-Threatening, Hospitalization)
  Sender: FDA-Public Use
  Company Number: PHBS2006JP16304

PATIENT
  Age: 76 Year
  Sex: Male

DRUGS (4)
  1. ADALAT [Concomitant]
     Dosage: 40 MG
     Route: 048
     Dates: end: 20061017
  2. ACTOS [Concomitant]
     Dosage: 15 MG/DAY
     Route: 048
     Dates: end: 20061017
  3. LASIX [Concomitant]
     Dosage: 20 MG/DAY
     Route: 048
     Dates: end: 20061017
  4. DIOVAN [Suspect]
     Indication: HYPERTENSION
     Dosage: 80 MG, TID
     Route: 048
     Dates: end: 20061017

REACTIONS (7)
  - CELL MARKER INCREASED [None]
  - CHOKING SENSATION [None]
  - INFLAMMATION [None]
  - INTERSTITIAL LUNG DISEASE [None]
  - LUNG DISORDER [None]
  - PALPITATIONS [None]
  - WHITE BLOOD CELL COUNT INCREASED [None]
